FAERS Safety Report 5954434-4 (Version None)
Quarter: 2008Q4

REPORT INFORMATION
  Report Type: 
  Country: None (occurrence: None)
  Receive Date: 20081112
  Receipt Date: 20081031
  Transmission Date: 20090506
  Serious: Yes (Other)
  Sender: FDA-Public Use
  Company Number: 2008SP022417

PATIENT
  Age: 18 Year
  Sex: Male

DRUGS (2)
  1. DESLORATADINE [Suspect]
     Indication: MULTIPLE ALLERGIES
     Dosage: 5 MG;PRN;PO, 5 MG;QD;
     Route: 048
     Dates: start: 20020101
  2. DESLORATADINE [Suspect]
     Indication: MULTIPLE ALLERGIES
     Dosage: 5 MG;PRN;PO, 5 MG;QD;
     Route: 048
     Dates: start: 20080101

REACTIONS (6)
  - ACCIDENT [None]
  - EDUCATIONAL PROBLEM [None]
  - INAPPROPRIATE SCHEDULE OF DRUG ADMINISTRATION [None]
  - LETHARGY [None]
  - TREATMENT NONCOMPLIANCE [None]
  - VISUAL ACUITY REDUCED [None]
